FAERS Safety Report 16029203 (Version 1)
Quarter: 2019Q2

REPORT INFORMATION
  Report Type: Spontaneous
  Country: US (occurrence: US)
  Receive Date: 20190302
  Receipt Date: 20190302
  Transmission Date: 20190711
  Serious: Yes (Disabling)
  Sender: FDA-Public Use
  Company Number: None

PATIENT
  Age: 22 Year
  Sex: Female
  Weight: 53 kg

DRUGS (1)
  1. ROACCUTANE [Suspect]
     Active Substance: ISOTRETINOIN
     Route: 048

REACTIONS (1)
  - Psoriasis [None]

NARRATIVE: CASE EVENT DATE: 20181115
